FAERS Safety Report 9775874 (Version 2)
Quarter: 2014Q1

REPORT INFORMATION
  Report Type: Spontaneous
  Country: JP (occurrence: JP)
  Receive Date: 20131220
  Receipt Date: 20140122
  Transmission Date: 20141002
  Serious: Yes (Other)
  Sender: FDA-Public Use
  Company Number: JP-GLAXOSMITHKLINE-B0949265A

PATIENT
  Age: 50 Year
  Sex: Female

DRUGS (5)
  1. SERETIDE (50MCG/250MCG) [Suspect]
     Indication: ASTHMA
     Dosage: 250MCG TWICE PER DAY
     Route: 055
     Dates: end: 20130809
  2. SERETIDE (50MCG/500MCG) [Suspect]
     Indication: ASTHMA
     Dosage: 500MCG TWICE PER DAY
     Route: 055
     Dates: start: 20130810, end: 20131004
  3. SINGULAIR [Concomitant]
     Indication: ASTHMA
     Dosage: 10MG PER DAY
     Route: 048
  4. XYZAL [Concomitant]
     Dosage: 5MG PER DAY
     Route: 048
  5. FLORID [Concomitant]
     Indication: OESOPHAGEAL CANDIDIASIS
     Route: 048
     Dates: start: 20131004

REACTIONS (6)
  - Oesophageal candidiasis [Recovered/Resolved]
  - Nasopharyngitis [Unknown]
  - Cough [Recovering/Resolving]
  - Asthma [Unknown]
  - Rash [Recovered/Resolved]
  - Therapeutic response decreased [Unknown]
